FAERS Safety Report 4294120-2 (Version None)
Quarter: 2004Q1

REPORT INFORMATION
  Report Type: 
  Country: None (occurrence: None)
  Receive Date: 20040212
  Receipt Date: 20040209
  Transmission Date: 20041129
  Serious: Yes (Death)
  Sender: FDA-Public Use
  Company Number: 04-02-0218

PATIENT
  Age: 67 Year
  Sex: Male

DRUGS (3)
  1. TRAMADOL HCL [Suspect]
     Indication: PAIN
     Dosage: 100MG X4QD ORAL
     Route: 048
  2. PREDNISOLONE [Concomitant]
  3. AZATHIOPRINE [Concomitant]

REACTIONS (10)
  - ACCIDENTAL OVERDOSE [None]
  - CARDIO-RESPIRATORY ARREST [None]
  - CYANOSIS [None]
  - DRUG LEVEL ABOVE THERAPEUTIC [None]
  - DYSPNOEA [None]
  - HEPATIC FAILURE [None]
  - HEPATIC NECROSIS [None]
  - HYPOTENSION [None]
  - LIVER FUNCTION TEST ABNORMAL [None]
  - SOMNOLENCE [None]
